FAERS Safety Report 9782225 (Version 1)
Quarter: 2013Q4

REPORT INFORMATION
  Report Type: Spontaneous
  Country: CA (occurrence: CA)
  Receive Date: 20131226
  Receipt Date: 20131226
  Transmission Date: 20140711
  Serious: Yes (Other)
  Sender: FDA-Public Use
  Company Number: CA-JNJFOC-20131208970

PATIENT
  Age: 27 Year
  Sex: Female
  Weight: 47.63 kg

DRUGS (5)
  1. BENADRYL RS ALLERGY 25 MG [Suspect]
     Indication: HYPERSENSITIVITY
     Dosage: HALF TABLET AS NEEDED EVERY 12 TO 24 HOURS
     Route: 048
     Dates: end: 20131211
  2. ASPIRIN [Concomitant]
     Indication: TRANSIENT ISCHAEMIC ATTACK
     Route: 065
  3. VITAMIN D3 [Concomitant]
     Indication: VITAMIN SUPPLEMENTATION
     Route: 065
  4. INDAPAMIDE [Concomitant]
     Indication: BLOOD PRESSURE
     Route: 065
  5. APO-RAMIPRIL [Concomitant]
     Indication: BLOOD PRESSURE
     Route: 065

REACTIONS (3)
  - Syncope [Recovered/Resolved]
  - Thermal burn [Unknown]
  - Wrong technique in drug usage process [Unknown]
